FAERS Safety Report 20247370 (Version 2)
Quarter: 2021Q4

REPORT INFORMATION
  Report Type: Spontaneous
  Country: JP (occurrence: JP)
  Receive Date: 20211229
  Receipt Date: 20211230
  Transmission Date: 20220304
  Serious: Yes (Death, Life-Threatening, Hospitalization)
  Sender: FDA-Public Use
  Company Number: JP-PFIZER INC-202101807594

PATIENT
  Age: 70 Year
  Sex: Male
  Weight: 50 kg

DRUGS (12)
  1. SUTENT [Suspect]
     Active Substance: SUNITINIB MALATE
     Indication: Gastrointestinal stromal tumour
     Dosage: 4 CAPSULES, DAILY
     Route: 048
     Dates: start: 20210612, end: 20210625
  2. SUTENT [Suspect]
     Active Substance: SUNITINIB MALATE
     Dosage: 3 CAPSULES, DAILY
     Route: 048
     Dates: start: 20210722, end: 20210729
  3. SUTENT [Suspect]
     Active Substance: SUNITINIB MALATE
     Dosage: 3 CAPSULES, DAILY
     Route: 048
     Dates: start: 20210807, end: 20210814
  4. SUTENT [Suspect]
     Active Substance: SUNITINIB MALATE
     Dosage: 3 CAPSULES, DAILY
     Route: 048
     Dates: start: 20210821, end: 20210827
  5. SUTENT [Suspect]
     Active Substance: SUNITINIB MALATE
     Dosage: 3 CAPSULES, DAILY
     Route: 048
     Dates: start: 20210904, end: 20210910
  6. SUTENT [Suspect]
     Active Substance: SUNITINIB MALATE
     Dosage: 3 CAPSULES, DAILY
     Route: 048
     Dates: start: 20210918, end: 20210919
  7. RABEPRAZOLE SODIUM [Concomitant]
     Active Substance: RABEPRAZOLE SODIUM
     Dosage: UNK
     Route: 048
     Dates: start: 20210612, end: 20211027
  8. EXCELASE COMBINATION TABLETS [Concomitant]
     Dosage: UNK
     Route: 048
     Dates: start: 20210612, end: 20211027
  9. FLUNITRAZEPAM [Concomitant]
     Active Substance: FLUNITRAZEPAM
     Dosage: UNK
     Route: 048
     Dates: start: 20210612, end: 20211027
  10. CERCINE [Concomitant]
     Active Substance: DIAZEPAM
     Dosage: UNK
     Route: 048
     Dates: start: 20210612, end: 20211027
  11. HERBALS [Concomitant]
     Active Substance: HERBALS
     Dosage: UNK
     Route: 048
     Dates: start: 20210612, end: 20211027
  12. UREA [Concomitant]
     Active Substance: UREA
     Dosage: UNK
     Route: 062
     Dates: start: 20210612, end: 20210912

REACTIONS (8)
  - Neoplasm progression [Fatal]
  - Myelosuppression [Recovering/Resolving]
  - Anaemia [Recovering/Resolving]
  - Malaise [Not Recovered/Not Resolved]
  - Taste disorder [Not Recovered/Not Resolved]
  - Chills [Recovered/Resolved]
  - Pyrexia [Recovered/Resolved]
  - Decreased appetite [Unknown]

NARRATIVE: CASE EVENT DATE: 20210612
